FAERS Safety Report 7378904-X (Version None)
Quarter: 2011Q1

REPORT INFORMATION
  Report Type: 
  Country: None (occurrence: None)
  Receive Date: 20110328
  Receipt Date: 20110321
  Transmission Date: 20110831
  Serious: Yes (Hospitalization)
  Sender: FDA-Public Use
  Company Number: PHHY2010US81667

PATIENT
  Sex: Female
  Weight: 51.247 kg

DRUGS (2)
  1. TOBI [Suspect]
     Dosage: UNK
     Dates: start: 20101124
  2. TOBI [Suspect]
     Indication: CYSTIC FIBROSIS
     Dosage: 300 MG, BID 28 DAYS ON AND 28 DAYS OFF
     Dates: start: 20100223

REACTIONS (3)
  - CATHETER SITE PAIN [None]
  - CHEST PAIN [None]
  - PSEUDOMONAS INFECTION [None]
